FAERS Safety Report 7480297-4 (Version None)
Quarter: 2011Q2

REPORT INFORMATION
  Report Type: 
  Country: None (occurrence: None)
  Receive Date: 20110516
  Receipt Date: 20110510
  Transmission Date: 20111010
  Serious: Yes (Death)
  Sender: FDA-Public Use
  Company Number: US-CELGENEUS-163-20785-11043016

PATIENT
  Sex: Male

DRUGS (6)
  1. FENTANYL [Concomitant]
     Indication: PAIN
     Route: 048
  2. XANAX [Concomitant]
     Indication: ANXIETY
     Route: 048
  3. THALOMID [Suspect]
     Indication: MULTIPLE MYELOMA
     Dosage: 200 MILLIGRAM
     Route: 048
     Dates: start: 20100915, end: 20110414
  4. MSIR [Concomitant]
     Indication: PAIN
     Route: 048
  5. PROMETHAZINE [Concomitant]
     Indication: NAUSEA
     Route: 048
  6. DEXAMETHASONE [Concomitant]
     Route: 048

REACTIONS (4)
  - MULTIPLE MYELOMA [None]
  - PNEUMONIA ASPIRATION [None]
  - SPINAL CORD COMPRESSION [None]
  - SEPSIS [None]
